FAERS Safety Report 12742203 (Version 1)
Quarter: 2016Q3

REPORT INFORMATION
  Report Type: Report from Study
  Country: US (occurrence: US)
  Receive Date: 20160914
  Receipt Date: 20160914
  Transmission Date: 20161109
  Serious: No
  Sender: FDA-Public Use
  Company Number: PHEH2016US022630

PATIENT
  Sex: Male

DRUGS (3)
  1. COSENTYX [Suspect]
     Active Substance: SECUKINUMAB
     Indication: PRODUCT USED FOR UNKNOWN INDICATION
     Dosage: 300 MG, UNK
     Route: 058
     Dates: start: 201504, end: 201605
  2. TERBUTALINE [Concomitant]
     Active Substance: TERBUTALINE
     Indication: PRODUCT USED FOR UNKNOWN INDICATION
     Dosage: 1/2 TAB, QW2
     Route: 048
     Dates: end: 201605
  3. LISINOPRIL. [Concomitant]
     Active Substance: LISINOPRIL
     Indication: PRODUCT USED FOR UNKNOWN INDICATION
     Dosage: UNK, QD
     Route: 048
     Dates: end: 201605

REACTIONS (1)
  - No adverse event [Unknown]
